FAERS Safety Report 4455910-6 (Version None)
Quarter: 2004Q3

REPORT INFORMATION
  Report Type: 
  Country: None (occurrence: None)
  Receive Date: 20040920
  Receipt Date: 20040910
  Transmission Date: 20050211
  Serious: Yes (Hospitalization)
  Sender: FDA-Public Use
  Company Number: 2004-DE-04655GD

PATIENT
  Age: 61 Year
  Sex: Female

DRUGS (8)
  1. METHOTREXATE [Suspect]
     Indication: RHEUMATOID ARTHRITIS
     Dosage: 12.5 MG/WEEK
  2. AZATHIOPRINE [Suspect]
     Indication: RHEUMATOID ARTHRITIS
  3. LEFLUNOMIDE [Suspect]
     Indication: RHEUMATOID ARTHRITIS
     Dosage: 20 MG
  4. PREDNISONE [Concomitant]
  5. KETOPROFEN [Concomitant]
  6. PREDNISOLONE [Concomitant]
  7. ETIDRONATE (ETIDRONATE DISODIUM) [Concomitant]
  8. RANITIDINE [Concomitant]

REACTIONS (5)
  - BONE MARROW DEPRESSION [None]
  - DRUG INEFFECTIVE [None]
  - MOUTH ULCERATION [None]
  - PANCYTOPENIA [None]
  - PHARYNGOLARYNGEAL PAIN [None]
